FAERS Safety Report 12999482 (Version 3)
Quarter: 2017Q1

REPORT INFORMATION
  Report Type: Report from Study
  Country: US (occurrence: US)
  Receive Date: 20161205
  Receipt Date: 20170201
  Transmission Date: 20170428
  Serious: No
  Sender: FDA-Public Use
  Company Number: US-FERRINGPH-2016FE06390

PATIENT

DRUGS (2)
  1. SOMATROPIN [Suspect]
     Active Substance: SOMATROPIN
     Indication: GROWTH HORMONE DEFICIENCY
     Dosage: 0.019 MG/KG, DAILY
     Route: 065
  2. SOMATROPIN [Suspect]
     Active Substance: SOMATROPIN
     Dosage: 0.029 MG/KG, DAILY
     Route: 065

REACTIONS (5)
  - Intentional self-injury [Unknown]
  - Irritability [Unknown]
  - Decreased appetite [Unknown]
  - Intracranial pressure increased [Unknown]
  - Headache [Unknown]
